FAERS Safety Report 7610130-9 (Version None)
Quarter: 2011Q3

REPORT INFORMATION
  Report Type: 
  Country: None (occurrence: None)
  Receive Date: 20110715
  Receipt Date: 20110705
  Transmission Date: 20111222
  Serious: No
  Sender: FDA-Public Use
  Company Number: US-BIOGENIDEC-2011BI024236

PATIENT
  Age: 23 Year
  Sex: Female

DRUGS (2)
  1. AVONEX [Concomitant]
     Indication: MULTIPLE SCLEROSIS
     Route: 030
     Dates: start: 20060517
  2. TYSABRI [Suspect]
     Indication: MULTIPLE SCLEROSIS
     Route: 042
     Dates: start: 20110601

REACTIONS (16)
  - EAR PAIN [None]
  - DIARRHOEA [None]
  - EAR INFECTION [None]
  - PRURITUS [None]
  - NASAL CONGESTION [None]
  - COUGH [None]
  - CHEST DISCOMFORT [None]
  - ARTHRALGIA [None]
  - FATIGUE [None]
  - DIZZINESS [None]
  - VIRAL INFECTION [None]
  - RHINORRHOEA [None]
  - HEADACHE [None]
  - ASTHENIA [None]
  - CHEST PAIN [None]
  - PAIN IN EXTREMITY [None]
